FAERS Safety Report 5785456-4 (Version None)
Quarter: 2008Q2

REPORT INFORMATION
  Report Type: 
  Country: None (occurrence: None)
  Receive Date: 20080605
  Receipt Date: 20080219
  Transmission Date: 20081010
  Serious: No
  Sender: FDA-Public Use
  Company Number: A0710371A

PATIENT
  Age: 70 Year
  Sex: Male

DRUGS (6)
  1. ALLI [Suspect]
     Indication: DRUG USE FOR UNKNOWN INDICATION
     Route: 048
  2. DIOVAN HCT [Concomitant]
     Dosage: 12.5MG UNKNOWN
     Route: 065
  3. NORVASC [Concomitant]
     Dosage: 2.5MG UNKNOWN
     Route: 065
  4. TOPROL-XL [Concomitant]
     Dosage: 25MG UNKNOWN
     Route: 065
  5. LIPITOR [Concomitant]
     Dosage: 20MG UNKNOWN
     Route: 065
  6. ALLOPURINOL [Concomitant]
     Dosage: 300MG UNKNOWN
     Route: 065

REACTIONS (4)
  - ERECTILE DYSFUNCTION [None]
  - POLLAKIURIA [None]
  - TESTICULAR PAIN [None]
  - URINE FLOW DECREASED [None]
